FAERS Safety Report 9136833 (Version 1)
Quarter: 2013Q1

REPORT INFORMATION
  Report Type: Spontaneous
  Country: US (occurrence: US)
  Receive Date: 20130304
  Receipt Date: 20130304
  Transmission Date: 20140127
  Serious: No
  Sender: FDA-Public Use
  Company Number: US-ABBOTT-12P-163-0940308-00

PATIENT
  Sex: Male
  Weight: 79.45 kg

DRUGS (2)
  1. ANDROGEL 1% [Suspect]
     Indication: BLOOD TESTOSTERONE DECREASED
     Route: 061
     Dates: start: 201009, end: 201010
  2. ANDROGEL 1% [Suspect]
     Route: 061
     Dates: start: 201110, end: 201112

REACTIONS (2)
  - Drug ineffective [Not Recovered/Not Resolved]
  - Libido decreased [Not Recovered/Not Resolved]
